FAERS Safety Report 11118198 (Version 1)
Quarter: 2015Q2

REPORT INFORMATION
  Report Type: Spontaneous
  Country: US (occurrence: None)
  Receive Date: 20150515
  Receipt Date: 20150515
  Transmission Date: 20150821
  Serious: Yes (Life-Threatening, Hospitalization)
  Sender: FDA-Public Use
  Company Number: None

PATIENT
  Age: 53 Year
  Sex: Female
  Weight: 106.6 kg

DRUGS (8)
  1. ALBUTEROL HFA [Concomitant]
     Active Substance: ALBUTEROL SULFATE
  2. ZOLPIDEM [Concomitant]
     Active Substance: ZOLPIDEM\ZOLPIDEM TARTRATE
  3. GABAPENTIN. [Concomitant]
     Active Substance: GABAPENTIN
  4. MOMETASONE FURO-FORMOTEROL FUM [Concomitant]
  5. LISINOPRIL. [Suspect]
     Active Substance: LISINOPRIL
     Indication: MICROALBUMINURIA
     Route: 048
     Dates: start: 20131209, end: 20140529
  6. TRAM/HCT [Concomitant]
  7. XOLAIR [Concomitant]
     Active Substance: OMALIZUMAB
  8. QVAR [Concomitant]
     Active Substance: BECLOMETHASONE DIPROPIONATE

REACTIONS (5)
  - Bronchospasm [None]
  - Angioedema [None]
  - Delirium [None]
  - Coma [None]
  - Hypotension [None]

NARRATIVE: CASE EVENT DATE: 20140529
